FAERS Safety Report 13626411 (Version 2)
Quarter: 2017Q4

REPORT INFORMATION
  Report Type: Spontaneous
  Country: US (occurrence: US)
  Receive Date: 20170607
  Receipt Date: 20171123
  Transmission Date: 20180320
  Serious: No
  Sender: FDA-Public Use
  Company Number: US-JNJFOC-20170416689

PATIENT
  Sex: Male

DRUGS (2)
  1. RISPERDAL [Suspect]
     Active Substance: RISPERIDONE
     Indication: BIPOLAR DISORDER
     Dosage: 0.25 MG, 1 MG AND 2 MG
     Route: 048
     Dates: start: 20061230, end: 20070809
  2. RISPERDAL [Suspect]
     Active Substance: RISPERIDONE
     Indication: ATTENTION DEFICIT/HYPERACTIVITY DISORDER
     Dosage: 0.25 MG, 1 MG AND 2 MG
     Route: 048
     Dates: start: 20061230, end: 20070809

REACTIONS (2)
  - Gynaecomastia [Unknown]
  - Emotional disorder [Unknown]
